FAERS Safety Report 7367334-2 (Version None)
Quarter: 2011Q1

REPORT INFORMATION
  Report Type: 
  Country: None (occurrence: None)
  Receive Date: 20110322
  Receipt Date: 20110318
  Transmission Date: 20110831
  Serious: Yes (Life-Threatening)
  Sender: FDA-Public Use
  Company Number: FR-ASTRAZENECA-2011SE15410

PATIENT
  Age: 19554 Day
  Sex: Male

DRUGS (6)
  1. OLMETEC [Suspect]
     Indication: HYPERTENSION
     Route: 048
     Dates: end: 20100917
  2. CRESTOR [Suspect]
     Indication: DYSLIPIDAEMIA
     Route: 048
     Dates: end: 20100917
  3. PAROXETINE HCL [Concomitant]
     Indication: DEPRESSION
     Route: 048
     Dates: end: 20100917
  4. MIANSERINE [Concomitant]
     Indication: DEPRESSION
     Route: 048
     Dates: end: 20100917
  5. HEPT-A-MYL [Concomitant]
     Route: 048
     Dates: end: 20100917
  6. SERESTA [Concomitant]
     Indication: DEPRESSION
     Route: 048
     Dates: end: 20100917

REACTIONS (1)
  - RENAL FAILURE ACUTE [None]
